FAERS Safety Report 20906491 (Version 1)
Quarter: 2022Q2

REPORT INFORMATION
  Report Type: Spontaneous
  Country: US (occurrence: US)
  Receive Date: 20220602
  Receipt Date: 20220602
  Transmission Date: 20220720
  Serious: Yes (Other)
  Sender: FDA-Public Use
  Company Number: US-BAYER-2022A075551

PATIENT
  Sex: Male

DRUGS (1)
  1. BAYER ASPIRIN EXTRA STRENGTH CAPLETS [Suspect]
     Active Substance: ASPIRIN
     Indication: Pain
     Dosage: UNK
     Route: 048

REACTIONS (1)
  - Chest discomfort [Unknown]
